FAERS Safety Report 16934366 (Version 1)
Quarter: 2019Q4

REPORT INFORMATION
  Report Type: Spontaneous
  Country: RO (occurrence: RO)
  Receive Date: 20191018
  Receipt Date: 20191018
  Transmission Date: 20200122
  Serious: Yes (Other)
  Sender: FDA-Public Use
  Company Number: RO-UNICHEM PHARMACEUTICALS (USA) INC-UCM201910-000566

PATIENT
  Age: 64 Year
  Sex: Female

DRUGS (2)
  1. CANDESARTAN. [Concomitant]
     Active Substance: CANDESARTAN
     Indication: PULMONARY SARCOIDOSIS
  2. BISOPROLOL FUMARATE. [Suspect]
     Active Substance: BISOPROLOL FUMARATE
     Indication: HYPERTENSION

REACTIONS (2)
  - Neutrophilic dermatosis [Recovered/Resolved]
  - Lupus-like syndrome [Recovered/Resolved]
